FAERS Safety Report 8736597 (Version 2)
Quarter: 2012Q4

REPORT INFORMATION
  Report Type: 
  Country: US (occurrence: US)
  Receive Date: 20120822
  Receipt Date: 20120912
  Transmission Date: 20130627
  Serious: Yes (Hospitalization)
  Sender: FDA-Public Use
  Company Number: US-GLAXOSMITHKLINE-A0989882A

PATIENT
  Age: 79 Year
  Sex: Male

DRUGS (10)
  1. ADVAIR [Suspect]
     Indication: CHRONIC OBSTRUCTIVE PULMONARY DISEASE
     Dosage: 1PUFF Twice per day
     Route: 055
  2. COMBIVENT [Concomitant]
  3. PROVENTIL [Concomitant]
  4. LOSARTAN [Concomitant]
  5. GLIMEPIRIDE [Concomitant]
  6. HYTRIN [Concomitant]
  7. NORVASC [Concomitant]
  8. CELEXA [Concomitant]
  9. MOTRIN [Concomitant]
  10. ALBUTEROL/IPRATROPIUM [Concomitant]

REACTIONS (4)
  - Pneumonia [Recovered/Resolved]
  - Sinusitis [Unknown]
  - Eye movement disorder [Unknown]
  - Oxygen saturation decreased [Unknown]
